FAERS Safety Report 8967662 (Version 3)
Quarter: 2013Q1

REPORT INFORMATION
  Report Type: Spontaneous
  Country: US (occurrence: None)
  Receive Date: 20121206
  Receipt Date: 20130204
  Transmission Date: 20140127
  Serious: Yes (Hospitalization)
  Sender: FDA-Public Use
  Company Number: QSC-2012-0326

PATIENT
  Age: 24 Month
  Sex: Male
  Weight: 15.3 kg

DRUGS (2)
  1. H.P. ACTHAR GEL (ADRENOCORTICOTROPIC HORMONE) GEL FOR INJECTION, 80U/ML [Suspect]
     Indication: OPSOCLONUS MYOCLONUS
     Dosage: 40 UNITS, BID, INTRAMUSCULAR
     Route: 030
     Dates: start: 20121109, end: 20121115
  2. IMMUNOGLOBULIN (IMMUNOGLOBULINS NOS) [Concomitant]

REACTIONS (8)
  - Dilatation intrahepatic duct congenital [None]
  - Upper gastrointestinal haemorrhage [None]
  - Anaemia [None]
  - Oesophageal varices haemorrhage [None]
  - Sinus bradycardia [None]
  - Hyponatraemia [None]
  - Hypoalbuminaemia [None]
  - Pleural effusion [None]
